FAERS Safety Report 9733739 (Version 2)
Quarter: 2013Q4

REPORT INFORMATION
  Report Type: Spontaneous
  Country: GB (occurrence: GB)
  Receive Date: 20131205
  Receipt Date: 20131212
  Transmission Date: 20140711
  Serious: Yes (Hospitalization)
  Sender: FDA-Public Use
  Company Number: GB-ABBVIE-13P-167-1175842-00

PATIENT
  Age: 58 Year
  Sex: Female

DRUGS (2)
  1. CLARITHROMYCIN [Suspect]
     Indication: PRODUCT USED FOR UNKNOWN INDICATION
  2. WARFARIN [Interacting]
     Indication: PRODUCT USED FOR UNKNOWN INDICATION

REACTIONS (2)
  - Contusion [Unknown]
  - Drug interaction [Unknown]
